FAERS Safety Report 19886352 (Version 2)
Quarter: 2021Q4

REPORT INFORMATION
  Report Type: Report from Study
  Country: US (occurrence: US)
  Receive Date: 20210928
  Receipt Date: 20211103
  Transmission Date: 20220303
  Serious: No
  Sender: FDA-Public Use
  Company Number: US-NOVARTISTESTPH-NVSC2021US219225

PATIENT
  Sex: Male

DRUGS (1)
  1. ENTRESTO [Suspect]
     Active Substance: SACUBITRIL\VALSARTAN
     Indication: Product used for unknown indication
     Dosage: 1 DF, BID (STARTED ENTRESTO APPROXIMATELY 1 WEEK AGO)
     Route: 048

REACTIONS (4)
  - Sensitivity to weather change [Unknown]
  - Seasonal allergy [Unknown]
  - Fatigue [Unknown]
  - Cough [Unknown]
